FAERS Safety Report 25516713 (Version 1)
Quarter: 2025Q3

REPORT INFORMATION
  Report Type: Spontaneous
  Country: US (occurrence: US)
  Receive Date: 20250704
  Receipt Date: 20250704
  Transmission Date: 20251021
  Serious: No
  Sender: INNOGENIX, LLC
  Company Number: US-Innogenix, LLC-2179923

PATIENT
  Sex: Female

DRUGS (2)
  1. METOLAZONE [Suspect]
     Active Substance: METOLAZONE
     Indication: Polyuria
  2. BUMEX [Concomitant]
     Active Substance: BUMETANIDE

REACTIONS (4)
  - Dyspnoea [Unknown]
  - Fatigue [Unknown]
  - Headache [Unknown]
  - Myalgia [Unknown]
